FAERS Safety Report 4796501-7 (Version None)
Quarter: 2005Q4

REPORT INFORMATION
  Report Type: 
  Country: None (occurrence: None)
  Receive Date: 20051013
  Receipt Date: 20051003
  Transmission Date: 20060501
  Serious: Yes (Hospitalization)
  Sender: FDA-Public Use
  Company Number: AT-JNJFOC-20051000429

PATIENT
  Sex: Female
  Weight: 67 kg

DRUGS (3)
  1. RISPERDAL [Suspect]
     Dosage: HALF DOSE IN THE MORNING/HALF DOSE IN THE EVENING.
     Route: 065
  2. RISPERDAL [Suspect]
     Dosage: HALF DOSE IN THE MORNING/HALF DOSE IN THE EVENING.
     Route: 065
  3. RISPERDAL [Suspect]
     Dosage: HALF DOSE IN THE MORNING/HALF DOSE IN THE EVENING.
     Route: 065

REACTIONS (1)
  - HYPOCHROMIC ANAEMIA [None]
